FAERS Safety Report 24871096 (Version 3)
Quarter: 2025Q3

REPORT INFORMATION
  Report Type: Spontaneous
  Country: EU (occurrence: EU)
  Receive Date: 20250122
  Receipt Date: 20250810
  Transmission Date: 20251021
  Serious: Yes (Hospitalization, Other)
  Sender: ALEXION PHARMACEUTICALS
  Company Number: EU-Covis Pharma Europe B.V.-2025COV00023

PATIENT
  Age: 54 Year
  Sex: Female

DRUGS (19)
  1. TEZEPELUMAB [Suspect]
     Active Substance: TEZEPELUMAB
     Route: 065
  2. TEZEPELUMAB [Suspect]
     Active Substance: TEZEPELUMAB
  3. CICLESONIDE [Suspect]
     Active Substance: CICLESONIDE
     Route: 065
  4. SERETIDE [Suspect]
     Active Substance: FLUTICASONE PROPIONATE\SALMETEROL XINAFOATE
     Route: 065
  5. ALBUTEROL [Suspect]
     Active Substance: ALBUTEROL
     Route: 065
  6. ALBUTEROL [Suspect]
     Active Substance: ALBUTEROL
  7. SINGULAIR [Suspect]
     Active Substance: MONTELUKAST SODIUM
     Route: 065
  8. THEOPHYLLINE [Suspect]
     Active Substance: THEOPHYLLINE
     Route: 065
  9. INDACATEROL [Suspect]
     Active Substance: INDACATEROL
     Route: 065
  10. FLUTICASONE FUROATE\VILANTEROL TRIFENATATE [Suspect]
     Active Substance: FLUTICASONE FUROATE\VILANTEROL TRIFENATATE
     Route: 065
  11. CICLESONIDE [Suspect]
     Active Substance: CICLESONIDE
     Route: 065
  12. CICLESONIDE [Suspect]
     Active Substance: CICLESONIDE
     Route: 065
  13. ROFLUMILAST [Suspect]
     Active Substance: ROFLUMILAST
     Route: 065
  14. MONTELUKAST [Suspect]
     Active Substance: MONTELUKAST
     Route: 065
  15. MONTELUKAST [Suspect]
     Active Substance: MONTELUKAST
  16. CETIRIZINE HYDROCHLORIDE [Suspect]
     Active Substance: CETIRIZINE HYDROCHLORIDE
     Route: 065
  17. DYMISTA [Suspect]
     Active Substance: AZELASTINE HYDROCHLORIDE\FLUTICASONE PROPIONATE
     Route: 065
  18. ROFLUMILAST [Suspect]
     Active Substance: ROFLUMILAST
     Route: 065
  19. PREDNISOLONE [Suspect]
     Active Substance: PREDNISOLONE
     Route: 065

REACTIONS (3)
  - Pneumonia [Unknown]
  - Adrenal insufficiency [Unknown]
  - Asthma [Recovered/Resolved]

NARRATIVE: CASE EVENT DATE: 20130101
